FAERS Safety Report 6045057-X (Version None)
Quarter: 2009Q1

REPORT INFORMATION
  Report Type: 
  Country: None (occurrence: None)
  Receive Date: 20090121
  Receipt Date: 20090116
  Transmission Date: 20090719
  Serious: Yes (Other)
  Sender: FDA-Public Use
  Company Number: GB-BRISTOL-MYERS SQUIBB COMPANY-14476469

PATIENT
  Sex: Female

DRUGS (3)
  1. ABILIFY [Suspect]
     Route: 048
  2. DEPAKOTE [Concomitant]
  3. MIRTAZAPINE [Concomitant]

REACTIONS (1)
  - PULMONARY EMBOLISM [None]
